FAERS Safety Report 23512406 (Version 4)
Quarter: 2024Q2

REPORT INFORMATION
  Report Type: Report from Study
  Country: US (occurrence: US)
  Receive Date: 20240212
  Receipt Date: 20240517
  Transmission Date: 20240716
  Serious: Yes (Other)
  Sender: FDA-Public Use
  Company Number: US-JAZZ PHARMACEUTICALS-2024-US-002386

PATIENT
  Age: 42 Year
  Sex: Female

DRUGS (6)
  1. SODIUM OXYBATE [Suspect]
     Active Substance: SODIUM OXYBATE
     Indication: Narcolepsy
     Dosage: UNK
  2. SODIUM OXYBATE [Suspect]
     Active Substance: SODIUM OXYBATE
     Indication: Cataplexy
     Dosage: 4.5 GRAM, BID
  3. SODIUM OXYBATE [Suspect]
     Active Substance: SODIUM OXYBATE
     Indication: Somnolence
  4. DIAZEPAM [Suspect]
     Active Substance: DIAZEPAM
     Indication: Product used for unknown indication
  5. ADDERALL [Concomitant]
     Active Substance: AMPHETAMINE ASPARTATE\AMPHETAMINE SULFATE\DEXTROAMPHETAMINE SACCHARATE\DEXTROAMPHETAMINE SULFATE
     Indication: Product used for unknown indication
     Dosage: 0000
     Dates: start: 20240117
  6. OPZELURA [Concomitant]
     Active Substance: RUXOLITINIB PHOSPHATE
     Indication: Product used for unknown indication
     Dosage: UNK
     Dates: start: 20230801

REACTIONS (4)
  - Spinal fusion surgery [Recovering/Resolving]
  - Fall [Unknown]
  - Fractured coccyx [Unknown]
  - Nausea [Unknown]

NARRATIVE: CASE EVENT DATE: 20231220
